FAERS Safety Report 5515656-X (Version None)
Quarter: 2007Q4

REPORT INFORMATION
  Report Type: 
  Country: None (occurrence: None)
  Receive Date: 20071113
  Receipt Date: 20070814
  Transmission Date: 20080405
  Serious: No
  Sender: FDA-Public Use
  Company Number: A0667369A

PATIENT
  Age: 78 Year
  Sex: Female

DRUGS (3)
  1. COREG [Suspect]
     Dosage: 6.25MG TWICE PER DAY
     Route: 048
     Dates: start: 20060724
  2. WARFARIN SODIUM [Concomitant]
  3. LISINOPRIL [Concomitant]

REACTIONS (3)
  - BLOOD URINE PRESENT [None]
  - DIZZINESS [None]
  - URINARY TRACT INFECTION [None]
